FAERS Safety Report 8307561-0 (Version None)
Quarter: 2012Q2

REPORT INFORMATION
  Report Type: 
  Country: None (occurrence: None)
  Receive Date: 20120424
  Receipt Date: 20120417
  Transmission Date: 20120825
  Serious: No
  Sender: FDA-Public Use
  Company Number: US-PFIZER INC-2012096045

PATIENT
  Sex: Female

DRUGS (5)
  1. NEURONTIN [Concomitant]
     Dosage: UNK
  2. PROCARDIA [Concomitant]
     Dosage: UNK
  3. LYRICA [Suspect]
     Dosage: UNK
  4. PREMPRO [Concomitant]
     Dosage: UNK
  5. CELEBREX [Concomitant]
     Dosage: UNK

REACTIONS (1)
  - WEIGHT INCREASED [None]
